FAERS Safety Report 18927611 (Version 2)
Quarter: 2021Q1

REPORT INFORMATION
  Report Type: Spontaneous
  Country: KR (occurrence: KR)
  Receive Date: 20210223
  Receipt Date: 20210315
  Transmission Date: 20210420
  Serious: Yes (Life-Threatening, Hospitalization, Other)
  Sender: FDA-Public Use
  Company Number: KR-MACLEODS PHARMACEUTICALS US LTD-MAC2021030231

PATIENT

DRUGS (6)
  1. ARIPIPRAZOLE. [Suspect]
     Active Substance: ARIPIPRAZOLE
     Indication: BIPOLAR II DISORDER
     Dosage: UNK
     Route: 065
  2. LORAZEPAM. [Suspect]
     Active Substance: LORAZEPAM
     Indication: BIPOLAR II DISORDER
     Dosage: UNK
     Route: 065
  3. LITHIUM. [Suspect]
     Active Substance: LITHIUM
     Indication: BIPOLAR II DISORDER
     Dosage: UNK
     Route: 065
     Dates: start: 201810
  4. LORAZEPAM. [Suspect]
     Active Substance: LORAZEPAM
     Dosage: UNK
     Route: 065
     Dates: start: 201810
  5. LITHIUM. [Suspect]
     Active Substance: LITHIUM
     Dosage: UNK
     Route: 065
     Dates: start: 2008
  6. ARIPIPRAZOLE. [Suspect]
     Active Substance: ARIPIPRAZOLE
     Dosage: UNK
     Route: 065
     Dates: start: 201810

REACTIONS (8)
  - Acute kidney injury [Recovered/Resolved]
  - Rhabdomyolysis [Recovered/Resolved]
  - Neuroleptic malignant syndrome [Recovering/Resolving]
  - Haemodynamic instability [Recovering/Resolving]
  - Toxicity to various agents [Recovering/Resolving]
  - Metabolic acidosis [Recovering/Resolving]
  - Toxicity to various agents [Unknown]
  - Intentional overdose [Recovering/Resolving]

NARRATIVE: CASE EVENT DATE: 2018
